FAERS Safety Report 19785485 (Version 2)
Quarter: 2021Q3

REPORT INFORMATION
  Report Type: Report from Study
  Country: CO (occurrence: CO)
  Receive Date: 20210903
  Receipt Date: 20210920
  Transmission Date: 20211014
  Serious: Yes (Hospitalization, Other)
  Sender: FDA-Public Use
  Company Number: NVSC2021CO196632

PATIENT
  Age: 28 Year
  Sex: Male
  Weight: 72 kg

DRUGS (3)
  1. TASIGNA [Suspect]
     Active Substance: NILOTINIB
     Indication: CHRONIC MYELOID LEUKAEMIA
     Dosage: 800 MG, QD
     Route: 048
     Dates: start: 201811, end: 202108
  2. PONATINIB [Concomitant]
     Active Substance: PONATINIB
     Indication: CHRONIC MYELOID LEUKAEMIA
     Dosage: 3 DF, QD (3 TABLETS OF 15 MG)
     Route: 048
     Dates: start: 202108
  3. TASIGNA [Suspect]
     Active Substance: NILOTINIB
     Dosage: 800 MG, QD
     Route: 048
     Dates: end: 202108

REACTIONS (15)
  - Transformation to acute myeloid leukaemia [Unknown]
  - Inappropriate schedule of product administration [Unknown]
  - Pleural effusion [Unknown]
  - Pyrexia [Unknown]
  - Pneumonia [Unknown]
  - Total lung capacity decreased [Unknown]
  - Memory impairment [Unknown]
  - Product dose omission issue [Unknown]
  - Sleep deficit [Unknown]
  - Anaemia [Recovered/Resolved]
  - Contusion [Unknown]
  - Laboratory test abnormal [Unknown]
  - Mania [Unknown]
  - Decreased immune responsiveness [Unknown]
  - Lung disorder [Unknown]

NARRATIVE: CASE EVENT DATE: 202107
